FAERS Safety Report 9995535 (Version 2)
Quarter: 2014Q2

REPORT INFORMATION
  Report Type: Spontaneous
  Country: TW (occurrence: TW)
  Receive Date: 20140311
  Receipt Date: 20140618
  Transmission Date: 20141212
  Serious: Yes (Hospitalization)
  Sender: FDA-Public Use
  Company Number: TW-SA-2014SA024887

PATIENT
  Age: 74 Year
  Sex: Male

DRUGS (3)
  1. PLAVIX [Suspect]
     Indication: PRODUCT USED FOR UNKNOWN INDICATION
     Route: 048
     Dates: start: 20131023
  2. FUROSEMIDE [Concomitant]
  3. LOSARTAN [Concomitant]

REACTIONS (3)
  - Pulmonary oedema [Recovered/Resolved]
  - Dizziness [Recovered/Resolved]
  - Tachypnoea [Recovered/Resolved]
